FAERS Safety Report 17437585 (Version 1)
Quarter: 2020Q1

REPORT INFORMATION
  Report Type: Report from Study
  Country: AR (occurrence: AR)
  Receive Date: 20200219
  Receipt Date: 20200219
  Transmission Date: 20200409
  Serious: Yes (Other)
  Sender: FDA-Public Use
  Company Number: AR-JNJFOC-20200150175

PATIENT
  Age: 78 Year
  Sex: Female
  Weight: 69 kg

DRUGS (1)
  1. SIMPONI [Suspect]
     Active Substance: GOLIMUMAB
     Indication: RHEUMATOID ARTHRITIS
     Route: 058
     Dates: start: 20200113

REACTIONS (4)
  - Nerve compression [Unknown]
  - Nasopharyngitis [Unknown]
  - Bone pain [Unknown]
  - Dislocation of vertebra [Unknown]

NARRATIVE: CASE EVENT DATE: 2020
